FAERS Safety Report 7591123-7 (Version None)
Quarter: 2011Q3

REPORT INFORMATION
  Report Type: 
  Country: None (occurrence: None)
  Receive Date: 20110705
  Receipt Date: 20110623
  Transmission Date: 20111222
  Serious: Yes (Disabling)
  Sender: FDA-Public Use
  Company Number: JP-ASTRAZENECA-2011SE35113

PATIENT
  Age: 21499 Day
  Sex: Male

DRUGS (7)
  1. MEROPENEM [Suspect]
     Route: 042
     Dates: start: 20110418, end: 20110423
  2. LONASEN [Suspect]
     Route: 048
     Dates: start: 20110312, end: 20110410
  3. LONASEN [Suspect]
     Indication: SCHIZOPHRENIA
     Route: 048
     Dates: start: 20110304, end: 20110311
  4. LONASEN [Suspect]
     Route: 048
     Dates: start: 20110411, end: 20110414
  5. POTACOL-R [Concomitant]
     Route: 042
     Dates: start: 20110417
  6. PHYSIO 35 [Concomitant]
     Route: 042
     Dates: start: 20110417
  7. UNASYN [Suspect]
     Indication: PNEUMONIA ASPIRATION
     Route: 042
     Dates: start: 20110417, end: 20110418

REACTIONS (1)
  - HEPATIC FUNCTION ABNORMAL [None]
